FAERS Safety Report 16785478 (Version 1)
Quarter: 2019Q4

REPORT INFORMATION
  Report Type: Spontaneous
  Country: US (occurrence: US)
  Receive Date: 20190907
  Receipt Date: 20190907
  Transmission Date: 20200122
  Serious: Yes (Disabling)
  Sender: FDA-Public Use
  Company Number: None

PATIENT
  Age: 57 Year
  Sex: Female
  Weight: 52.2 kg

DRUGS (2)
  1. AMOXICILLIN 08/18/2020 [Suspect]
     Active Substance: AMOXICILLIN
     Indication: TOOTH INFECTION
     Dosage: ?          QUANTITY:1 TABLET(S);?
     Route: 048
     Dates: start: 20190819, end: 20190827
  2. AMOXICILLIN 08/18/2020 [Suspect]
     Active Substance: AMOXICILLIN
     Indication: ENDODONTIC PROCEDURE
     Dosage: ?          QUANTITY:1 TABLET(S);?
     Route: 048
     Dates: start: 20190819, end: 20190827

REACTIONS (21)
  - Genital burning sensation [None]
  - Abdominal discomfort [None]
  - Palpitations [None]
  - Panic attack [None]
  - Asthenia [None]
  - Diarrhoea [None]
  - Insomnia [None]
  - Crying [None]
  - Anxiety [None]
  - Drug withdrawal syndrome [None]
  - Headache [None]
  - Nausea [None]
  - Neurotoxicity [None]
  - Malaise [None]
  - Decreased appetite [None]
  - Coordination abnormal [None]
  - Restlessness [None]
  - Encephalitis [None]
  - Musculoskeletal stiffness [None]
  - Akathisia [None]
  - Fatigue [None]

NARRATIVE: CASE EVENT DATE: 20190904
